FAERS Safety Report 4956253-4 (Version None)
Quarter: 2006Q1

REPORT INFORMATION
  Report Type: 
  Country: None (occurrence: None)
  Receive Date: 20060329
  Receipt Date: 20060317
  Transmission Date: 20060701
  Serious: Yes (Other)
  Sender: FDA-Public Use
  Company Number: DE-JNJFOC-20060200628

PATIENT
  Sex: Female
  Weight: 80 kg

DRUGS (1)
  1. HALOPERIDOL DECANOATE [Suspect]
     Indication: DRUG USE FOR UNKNOWN INDICATION
     Dosage: 1 AMPOULE

REACTIONS (4)
  - AGGRESSION [None]
  - CONVULSION [None]
  - DISTURBANCE IN ATTENTION [None]
  - RESTLESSNESS [None]
